FAERS Safety Report 9338767 (Version 1)
Quarter: 2013Q2

REPORT INFORMATION
  Report Type: Spontaneous
  Country: US (occurrence: None)
  Receive Date: 20130605
  Receipt Date: 20130605
  Transmission Date: 20140414
  Serious: Yes (Other)
  Sender: FDA-Public Use
  Company Number: None

PATIENT
  Sex: Male
  Weight: 78.47 kg

DRUGS (4)
  1. COMPLERA [Suspect]
     Indication: HIV INFECTION
     Route: 048
     Dates: start: 20120401, end: 20130603
  2. TERBINAFINE 250MG CAMBER [Concomitant]
  3. PAXIL 10MG [Concomitant]
  4. ALPRAZOLAM 0.5MG SUN PHARMA [Concomitant]

REACTIONS (4)
  - Paraesthesia [None]
  - Amnesia [None]
  - Mood swings [None]
  - Neuropathy peripheral [None]
